FAERS Safety Report 12310123 (Version 2)
Quarter: 2016Q2

REPORT INFORMATION
  Report Type: Spontaneous
  Country: JP (occurrence: JP)
  Receive Date: 20160427
  Receipt Date: 20160520
  Transmission Date: 20160815
  Serious: Yes (Other)
  Sender: FDA-Public Use
  Company Number: JP-JNJFOC-20160421464

PATIENT

DRUGS (3)
  1. RIBAVIRIN. [Concomitant]
     Active Substance: RIBAVIRIN
     Indication: CHRONIC HEPATITIS C
     Route: 048
     Dates: start: 201401, end: 2014
  2. SOVRIAD [Suspect]
     Active Substance: SIMEPREVIR
     Indication: CHRONIC HEPATITIS C
     Route: 048
     Dates: start: 201401, end: 2014
  3. PEGINTERFERON ALFA-2B [Concomitant]
     Active Substance: PEGINTERFERON ALFA-2B
     Indication: CHRONIC HEPATITIS C
     Route: 058
     Dates: start: 201401, end: 2014

REACTIONS (9)
  - Drug effect incomplete [Unknown]
  - Rash [Unknown]
  - Remission not achieved [Unknown]
  - Anaemia [Unknown]
  - Pruritus [Unknown]
  - Hepatitis C [Unknown]
  - Adverse reaction [Unknown]
  - Malaise [Unknown]
  - Decreased appetite [Unknown]
